FAERS Safety Report 6492520-3 (Version None)
Quarter: 2009Q4

REPORT INFORMATION
  Report Type: 
  Country: None (occurrence: None)
  Receive Date: 20091214
  Receipt Date: 20091202
  Transmission Date: 20100525
  Serious: Yes (Hospitalization)
  Sender: FDA-Public Use
  Company Number: BE-ROCHE-673207

PATIENT
  Sex: Female
  Weight: 85 kg

DRUGS (3)
  1. CAPECITABINE [Suspect]
     Indication: COLORECTAL CANCER STAGE III
     Route: 048
     Dates: start: 20090826, end: 20091007
  2. CAPECITABINE [Suspect]
     Route: 048
     Dates: start: 20091017, end: 20091019
  3. OXALIPLATIN [Suspect]
     Indication: COLORECTAL CANCER STAGE III
     Route: 042
     Dates: start: 20090826, end: 20090916

REACTIONS (3)
  - GENERAL PHYSICAL HEALTH DETERIORATION [None]
  - NAUSEA [None]
  - NEUROTOXICITY [None]
